FAERS Safety Report 21255199 (Version 1)
Quarter: 2022Q3

REPORT INFORMATION
  Report Type: Spontaneous
  Country: DE (occurrence: DE)
  Receive Date: 20220825
  Receipt Date: 20220825
  Transmission Date: 20221027
  Serious: Yes (Hospitalization, Other)
  Sender: FDA-Public Use
  Company Number: DE-NAPPMUNDI-GBR-2022-0100892

PATIENT
  Age: 61 Year
  Sex: Female
  Weight: 59 kg

DRUGS (3)
  1. OXYCODONE [Suspect]
     Active Substance: OXYCODONE
     Indication: Product used for unknown indication
     Dosage: UNKNOWN
     Route: 065
     Dates: start: 2020
  2. COMIRNATY [Suspect]
     Active Substance: TOZINAMERAN
     Indication: Immunisation
     Dosage: UNK
     Route: 030
     Dates: start: 20210429
  3. CEFUROXIME [Suspect]
     Active Substance: CEFUROXIME
     Indication: Shoulder operation
     Dosage: UNK
     Route: 065
     Dates: start: 202101

REACTIONS (13)
  - Hypertension [Recovering/Resolving]
  - Flushing [Recovering/Resolving]
  - Blood pressure increased [Recovering/Resolving]
  - Dizziness [Recovering/Resolving]
  - Dyspnoea [Recovering/Resolving]
  - Paraesthesia [Recovering/Resolving]
  - Nausea [Recovering/Resolving]
  - Anaphylactic reaction [Recovering/Resolving]
  - Headache [Recovering/Resolving]
  - Hypersensitivity [Recovering/Resolving]
  - Asthenia [Recovering/Resolving]
  - Restlessness [Not Recovered/Not Resolved]
  - Malaise [Not Recovered/Not Resolved]

NARRATIVE: CASE EVENT DATE: 20210429
